FAERS Safety Report 24254524 (Version 2)
Quarter: 2025Q3

REPORT INFORMATION
  Report Type: Spontaneous
  Country: EU (occurrence: EU)
  Receive Date: 20240827
  Receipt Date: 20250826
  Transmission Date: 20251021
  Serious: Yes (Other)
  Sender: BAUSCH AND LOMB
  Company Number: EU-BAUSCH-BL-2024-012754

PATIENT
  Age: 66 Year
  Sex: Female

DRUGS (9)
  1. BUDESONIDE [Suspect]
     Active Substance: BUDESONIDE
     Indication: Graft versus host disease
     Route: 048
  2. TACROLIMUS [Suspect]
     Active Substance: TACROLIMUS
     Indication: Graft versus host disease
     Route: 065
  3. RUXOLITINIB [Suspect]
     Active Substance: RUXOLITINIB
     Indication: Graft versus host disease
     Route: 065
  4. RUXOLITINIB [Suspect]
     Active Substance: RUXOLITINIB
     Route: 065
  5. METHYLPREDNISOLONE [Suspect]
     Active Substance: METHYLPREDNISOLONE
     Indication: Graft versus host disease
     Route: 065
  6. METHOTREXATE [Concomitant]
     Active Substance: METHOTREXATE
     Indication: Product used for unknown indication
  7. AZITHROMYCIN [Concomitant]
     Active Substance: AZITHROMYCIN
     Indication: Product used for unknown indication
  8. RIFAXIMIN [Concomitant]
     Active Substance: RIFAXIMIN
     Indication: Product used for unknown indication
  9. CYCLOSPORINE [Concomitant]
     Active Substance: CYCLOSPORINE
     Indication: Product used for unknown indication

REACTIONS (14)
  - Cytomegalovirus infection [Unknown]
  - Hypogammaglobulinaemia [Unknown]
  - Cardiac failure [Unknown]
  - Myopathy [Unknown]
  - Type 2 diabetes mellitus [Unknown]
  - Pneumatosis intestinalis [Unknown]
  - Epstein-Barr virus infection reactivation [Unknown]
  - Haemorrhagic diathesis [Unknown]
  - Hypoalbuminaemia [Unknown]
  - Asthenia [Unknown]
  - Hypoproteinaemia [Unknown]
  - Cognitive disorder [Unknown]
  - Platelet count abnormal [Unknown]
  - Product use in unapproved indication [Unknown]
